FAERS Safety Report 16545013 (Version 1)
Quarter: 2019Q3

REPORT INFORMATION
  Report Type: Report from Study
  Country: US (occurrence: US)
  Receive Date: 20190709
  Receipt Date: 20190709
  Transmission Date: 20191004
  Serious: Yes (Other)
  Sender: FDA-Public Use
  Company Number: US-HORIZON-PEN-0640-2019

PATIENT
  Age: 84 Year
  Sex: Male

DRUGS (1)
  1. PENNSAID [Suspect]
     Active Substance: DICLOFENAC SODIUM
     Indication: NECK PAIN
     Dosage: 3 TIMES DAILY, PRESCRIBED 2 PUMPS TWICE DAILY
     Dates: start: 20190627, end: 20190701

REACTIONS (4)
  - Off label use [Unknown]
  - Tremor [Recovered/Resolved]
  - Amnesia [Unknown]
  - Intentional product misuse [Unknown]

NARRATIVE: CASE EVENT DATE: 20190627
